FAERS Safety Report 22330832 (Version 1)
Quarter: 2023Q2

REPORT INFORMATION
  Report Type: Spontaneous
  Country: CN (occurrence: CN)
  Receive Date: 20230517
  Receipt Date: 20230517
  Transmission Date: 20230722
  Serious: Yes (Other)
  Sender: FDA-Public Use
  Company Number: CN-SUN PHARMACEUTICAL INDUSTRIES LTD-2023R1-381095

PATIENT
  Age: 81 Year
  Sex: Female

DRUGS (2)
  1. GEMCITABINE [Suspect]
     Active Substance: GEMCITABINE
     Indication: Bladder cancer
     Dosage: UNK EVERY THREE WEEKS
     Route: 043
     Dates: start: 20220304, end: 202206
  2. TISLELIZUMAB [Suspect]
     Active Substance: TISLELIZUMAB
     Indication: Bladder cancer
     Dosage: UNK EVERY THREE WEEKS
     Route: 042
     Dates: start: 20220304

REACTIONS (2)
  - Therapeutic response decreased [Unknown]
  - Cystitis [Unknown]

NARRATIVE: CASE EVENT DATE: 20220526
